FAERS Safety Report 17140734 (Version 2)
Quarter: 2019Q4

REPORT INFORMATION
  Report Type: Spontaneous
  Country: DE (occurrence: DE)
  Receive Date: 20191211
  Receipt Date: 20191216
  Transmission Date: 20200122
  Serious: Yes (Hospitalization)
  Sender: FDA-Public Use
  Company Number: DE-MYLANLABS-2019M1120252

PATIENT
  Age: 71 Year
  Sex: Male
  Weight: 90 kg

DRUGS (5)
  1. TORASEMIDE [Suspect]
     Active Substance: TORSEMIDE
     Indication: PRODUCT USED FOR UNKNOWN INDICATION
     Dosage: 20 MILLIGRAM (2-1-0-0, TABLETTEN)
     Route: 048
  2. SPIRONOLACTON [Suspect]
     Active Substance: SPIRONOLACTONE
     Dosage: 100 MILLIGRAM (100 MG, 1-0-0-0, TABLETTEN)
     Route: 048
  3. HEPA-MERZ                          /01390204/ [Concomitant]
     Active Substance: ORNITHINE ASPARTATE
     Dosage: UNK (NK MG, 1-0-0-0, BEUTEL)
     Route: 048
  4. VITAMIN B1 W/VITAMIN B12 NOS/VITAMIN B6 [Concomitant]
     Active Substance: CYANOCOBALAMIN\PYRIDOXINE\THIAMINE
     Dosage: UNK (100|100 MG, 1-0-0-0, TABLETTEN)
     Route: 048
  5. COLECALCIFEROL [Concomitant]
     Active Substance: CHOLECALCIFEROL
     Dosage: UNK (1000 IE, 1-0-0-0, KAPSELN)
     Route: 048

REACTIONS (4)
  - General physical health deterioration [Unknown]
  - Tremor [Unknown]
  - Gait disturbance [Unknown]
  - Product prescribing error [Unknown]
